FAERS Safety Report 6180262-3 (Version None)
Quarter: 2009Q2

REPORT INFORMATION
  Report Type: 
  Country: None (occurrence: None)
  Receive Date: 20090501
  Receipt Date: 20090427
  Transmission Date: 20091009
  Serious: Yes (Life-Threatening)
  Sender: FDA-Public Use
  Company Number: 2009TJ0095

PATIENT
  Age: 15 Year
  Sex: Female

DRUGS (2)
  1. TWINJECT 0.3 [Suspect]
     Indication: ANAPHYLACTIC REACTION
     Dosage: 0.3 MG, AS NEEDED
     Dates: start: 20090421, end: 20090421
  2. BENADRYL [Concomitant]

REACTIONS (1)
  - DRUG DELIVERY SYSTEM MALFUNCTION [None]
